FAERS Safety Report 23973132 (Version 3)
Quarter: 2025Q1

REPORT INFORMATION
  Report Type: Report from Study
  Country: RU (occurrence: RU)
  Receive Date: 20240613
  Receipt Date: 20250304
  Transmission Date: 20250408
  Serious: Yes (Death, Other)
  Sender: NOVARTIS
  Company Number: RU-002147023-NVSC2024RU045964

PATIENT
  Age: 51 Year
  Sex: Female

DRUGS (3)
  1. KISQALI [Suspect]
     Active Substance: RIBOCICLIB
     Indication: Breast cancer
     Dosage: 600 MG, QD
     Route: 048
     Dates: start: 20230404, end: 20230719
  2. KISQALI [Suspect]
     Active Substance: RIBOCICLIB
     Dosage: 400 MG, QD
     Route: 048
     Dates: start: 20230719, end: 20230919
  3. KISQALI [Suspect]
     Active Substance: RIBOCICLIB
     Route: 048
     Dates: start: 20230919, end: 20230929

REACTIONS (4)
  - Hepatotoxicity [Fatal]
  - Pleurisy [Fatal]
  - Transaminases increased [Fatal]
  - Metastases to pleura [Fatal]

NARRATIVE: CASE EVENT DATE: 20230719
